FAERS Safety Report 5571534-1 (Version None)
Quarter: 2007Q4

REPORT INFORMATION
  Report Type: 
  Country: None (occurrence: None)
  Receive Date: 20071221
  Receipt Date: 20071213
  Transmission Date: 20080405
  Serious: Yes (Death)
  Sender: FDA-Public Use
  Company Number: US-ELI_LILLY_AND_COMPANY-US200712002684

PATIENT
  Age: 85 Year
  Sex: Male

DRUGS (5)
  1. ZYPREXA [Suspect]
     Indication: AGITATION
     Dosage: 2.5 MG, UNK
     Route: 042
     Dates: start: 20071212
  2. FRAGMIN [Concomitant]
     Dosage: UNK, DAILY (1/D)
  3. LASIX [Concomitant]
     Dosage: UNK, DAILY (1/D)
  4. LOPRESSOR [Concomitant]
     Dosage: UNK, DAILY (1/D)
     Route: 042
  5. NITROGLYCERIN [Concomitant]
     Dosage: UNK, DAILY (1/D)
     Route: 042

REACTIONS (2)
  - DEATH [None]
  - MEDICATION ERROR [None]
